FAERS Safety Report 5225064-7 (Version None)
Quarter: 2007Q1

REPORT INFORMATION
  Report Type: 
  Country: None (occurrence: None)
  Receive Date: 20070131
  Receipt Date: 20070123
  Transmission Date: 20070707
  Serious: Yes (Hospitalization, Other)
  Sender: FDA-Public Use
  Company Number: US-AVENTIS-200615638US

PATIENT
  Sex: Female

DRUGS (14)
  1. APIDRA [Suspect]
     Dosage: DOSE: 1.6 UNITS/HR FOR 4 HOURS
     Dates: end: 20060701
  2. APIDRA [Suspect]
     Dosage: DOSE: 1.9 UNITS/HR FOR 20 HOURS
     Dates: end: 20060701
  3. HUMALOG [Suspect]
     Dosage: DOSE: 0.8U/HR 12:00-0400
  4. HUMALOG [Suspect]
     Dosage: DOSE: 1.2U/HR 04:00-07:00
  5. HUMALOG [Suspect]
     Dosage: DOSE: 1.0U/HR 07:00-00:00
  6. RAPAMUNE [Concomitant]
  7. FOSAMAX [Concomitant]
     Route: 048
  8. DIOVANE [Concomitant]
     Route: 048
  9. FUROSEMIDE [Concomitant]
     Dosage: DOSE: UNK
  10. FERROUS SULFATE TAB [Concomitant]
     Route: 048
  11. GLUCAGON [Concomitant]
     Dosage: DOSE: PRN
  12. PROGRAF [Concomitant]
  13. CALCIUM CARBONATE W/COLECALCIFEROL [Concomitant]
     Dosage: DOSE: 500/200
  14. CRESTOR [Concomitant]
     Route: 048

REACTIONS (7)
  - BLOOD CREATININE INCREASED [None]
  - DEPRESSED LEVEL OF CONSCIOUSNESS [None]
  - HYPOGLYCAEMIA [None]
  - HYPOGLYCAEMIC COMA [None]
  - PYELONEPHRITIS [None]
  - PYREXIA [None]
  - URINE ANALYSIS ABNORMAL [None]
